FAERS Safety Report 12646981 (Version 1)
Quarter: 2016Q3

REPORT INFORMATION
  Report Type: Spontaneous
  Country: US (occurrence: None)
  Receive Date: 20160811
  Receipt Date: 20160811
  Transmission Date: 20161109
  Serious: Yes (Hospitalization)
  Sender: FDA-Public Use
  Company Number: None

PATIENT
  Age: 49 Year
  Sex: Female
  Weight: 113.4 kg

DRUGS (5)
  1. CITALOPRAM [Concomitant]
     Active Substance: CITALOPRAM HYDROBROMIDE
  2. LISINOPRIL, 10 MG LUPIN PHARM [Suspect]
     Active Substance: LISINOPRIL
     Indication: HYPERTENSION
     Dosage: 3 TABLET(S) ONCE A DAY TAKEN BY MOUTH
     Route: 048
     Dates: start: 20160712, end: 20160713
  3. METOPROLOL. [Concomitant]
     Active Substance: METOPROLOL
  4. NEOCON [Concomitant]
     Active Substance: ETHINYL ESTRADIOL\NORETHINDRONE
  5. MELATONIN [Concomitant]
     Active Substance: MELATONIN

REACTIONS (3)
  - Dyspepsia [None]
  - Therapy non-responder [None]
  - Angioedema [None]

NARRATIVE: CASE EVENT DATE: 20160806
